FAERS Safety Report 24857579 (Version 1)
Quarter: 2025Q1

REPORT INFORMATION
  Report Type: Report from Study
  Country: US (occurrence: US)
  Receive Date: 20250117
  Receipt Date: 20250117
  Transmission Date: 20250409
  Serious: Yes (Other)
  Sender: ABBVIE
  Company Number: US-ABBVIE-6084219

PATIENT
  Sex: Female

DRUGS (1)
  1. HUMIRA [Suspect]
     Active Substance: ADALIMUMAB
     Indication: Product used for unknown indication
     Route: 058
     Dates: start: 20100601

REACTIONS (5)
  - Bone neoplasm [Unknown]
  - Bone neoplasm [Recovered/Resolved]
  - Behcet^s syndrome [Unknown]
  - Fatigue [Unknown]
  - Chronic sinusitis [Unknown]
